FAERS Safety Report 21866814 (Version 1)
Quarter: 2023Q1

REPORT INFORMATION
  Report Type: Spontaneous
  Country: PT (occurrence: ES)
  Receive Date: 20230116
  Receipt Date: 20230116
  Transmission Date: 20230417
  Serious: Yes (Hospitalization, Other)
  Sender: FDA-Public Use
  Company Number: None

PATIENT

DRUGS (1)
  1. ESLICARBAZEPINE ACETATE [Suspect]
     Active Substance: ESLICARBAZEPINE ACETATE
     Indication: Trigeminal neuralgia
     Dosage: 800 MILLIGRAM, DAILY
     Route: 048
     Dates: start: 20221206, end: 20221206

REACTIONS (4)
  - Asterixis [Unknown]
  - Myoclonus [Unknown]
  - Ataxia [Unknown]
  - Off label use [Unknown]

NARRATIVE: CASE EVENT DATE: 20221206
